FAERS Safety Report 21854691 (Version 1)
Quarter: 2023Q1

REPORT INFORMATION
  Report Type: Spontaneous
  Country: US (occurrence: US)
  Receive Date: 20230112
  Receipt Date: 20230112
  Transmission Date: 20230418
  Serious: No
  Sender: FDA-Public Use
  Company Number: US-PERRIGO-22US014600

PATIENT
  Sex: Male
  Weight: 108.84 kg

DRUGS (6)
  1. IBUPROFEN [Suspect]
     Active Substance: IBUPROFEN
     Indication: Headache
     Dosage: 800 MG, SINGLE
     Route: 048
     Dates: start: 20220926, end: 20220926
  2. IBUPROFEN [Suspect]
     Active Substance: IBUPROFEN
     Indication: Toothache
     Dosage: 800 MG, PRN
     Route: 048
     Dates: start: 2012
  3. MANGANESE [Concomitant]
     Active Substance: MANGANESE CHLORIDE
     Indication: Supplementation therapy
     Dosage: UNK
     Route: 065
     Dates: start: 2021
  4. BUPROPION [Concomitant]
     Active Substance: BUPROPION
     Indication: Anxiety
     Dosage: UNK
     Route: 065
     Dates: start: 2021
  5. VITAMINS NOS [Concomitant]
     Active Substance: VITAMINS
     Indication: Supplementation therapy
     Dosage: UNK
     Route: 065
     Dates: start: 2021
  6. MELATONIN [Concomitant]
     Active Substance: MELATONIN
     Indication: Supplementation therapy
     Dosage: UNK
     Route: 065
     Dates: start: 2021

REACTIONS (3)
  - Drug screen positive [Unknown]
  - Expired product administered [Unknown]
  - Incorrect dose administered [Unknown]

NARRATIVE: CASE EVENT DATE: 20120101
